FAERS Safety Report 25606588 (Version 1)
Quarter: 2025Q3

REPORT INFORMATION
  Report Type: Spontaneous
  Country: US (occurrence: US)
  Receive Date: 20250725
  Receipt Date: 20250725
  Transmission Date: 20251021
  Serious: Yes (Death)
  Sender: AMGEN
  Company Number: US-AMGEN-USASP2025140212

PATIENT

DRUGS (4)
  1. RITUXIMAB [Suspect]
     Active Substance: RITUXIMAB
     Indication: Myocarditis-myositis-myasthenia gravis overlap syndrome
     Route: 065
  2. HUMAN IMMUNOGLOBULIN G [Concomitant]
     Active Substance: HUMAN IMMUNOGLOBULIN G
     Indication: Myocarditis-myositis-myasthenia gravis overlap syndrome
     Route: 040
  3. PYRIDOSTIGMINE [Concomitant]
     Active Substance: PYRIDOSTIGMINE
     Indication: Myocarditis-myositis-myasthenia gravis overlap syndrome
     Route: 065
  4. MYCOPHENOLATE MOFETIL [Concomitant]
     Active Substance: MYCOPHENOLATE MOFETIL
     Indication: Myocarditis-myositis-myasthenia gravis overlap syndrome
     Route: 065

REACTIONS (2)
  - Myocarditis-myositis-myasthenia gravis overlap syndrome [Fatal]
  - Off label use [Unknown]
